FAERS Safety Report 24568423 (Version 1)
Quarter: 2024Q4

REPORT INFORMATION
  Report Type: Spontaneous
  Country: US (occurrence: US)
  Receive Date: 20241031
  Receipt Date: 20241031
  Transmission Date: 20250114
  Serious: No
  Sender: ABBVIE
  Company Number: US-ABBVIE-5980188

PATIENT
  Age: 40 Year
  Sex: Female
  Weight: 58.966 kg

DRUGS (1)
  1. BOTOX COSMETIC [Suspect]
     Active Substance: ONABOTULINUMTOXINA
     Indication: Lip cosmetic procedure
     Dosage: TIME INTERVAL: AS NECESSARY
     Route: 030
     Dates: start: 20240919, end: 20240919

REACTIONS (2)
  - Off label use [Not Recovered/Not Resolved]
  - Drug ineffective [Not Recovered/Not Resolved]

NARRATIVE: CASE EVENT DATE: 20240901
